FAERS Safety Report 11151319 (Version 2)
Quarter: 2015Q2

REPORT INFORMATION
  Report Type: Report from Study
  Country: BR (occurrence: BR)
  Receive Date: 20150601
  Receipt Date: 20150618
  Transmission Date: 20150821
  Serious: Yes (Other)
  Sender: FDA-Public Use
  Company Number: BR-SA-2015SA072787

PATIENT
  Sex: Male
  Weight: 63 kg

DRUGS (4)
  1. SOLOSTAR [Concomitant]
     Active Substance: DEVICE
     Dates: start: 201406
  2. LOSARTAN [Concomitant]
     Active Substance: LOSARTAN
     Indication: BLOOD PRESSURE
  3. VITAMIN D [Concomitant]
     Active Substance: CHOLECALCIFEROL
  4. LANTUS SOLOSTAR [Suspect]
     Active Substance: INSULIN GLARGINE
     Indication: TYPE 2 DIABETES MELLITUS
     Dosage: DOSE:  25 IU^S IN THE MORNING AND 5 IU^S AT NIGHT
     Route: 058
     Dates: start: 201406

REACTIONS (9)
  - Infection [Not Recovered/Not Resolved]
  - Memory impairment [Not Recovered/Not Resolved]
  - Asthenia [Unknown]
  - Syncope [Recovered/Resolved]
  - Confusional state [Not Recovered/Not Resolved]
  - Off label use [Unknown]
  - Walking aid user [Not Recovered/Not Resolved]
  - Hypoglycaemia [Recovered/Resolved]
  - Fall [Unknown]

NARRATIVE: CASE EVENT DATE: 2014
